FAERS Safety Report 7293664-9 (Version None)
Quarter: 2011Q1

REPORT INFORMATION
  Report Type: 
  Country: None (occurrence: None)
  Receive Date: 20110215
  Receipt Date: 20110207
  Transmission Date: 20110831
  Serious: Yes (Other)
  Sender: FDA-Public Use
  Company Number: B0687227A

PATIENT
  Sex: Female

DRUGS (3)
  1. PAXIL [Suspect]
     Indication: PANIC DISORDER
     Dosage: 10MG PER DAY
     Route: 048
     Dates: start: 20101116, end: 20101206
  2. SOLANAX [Concomitant]
     Indication: ANXIETY
     Route: 048
     Dates: start: 20101116
  3. GASMOTIN [Concomitant]
     Indication: NAUSEA
     Dosage: 15MG PER DAY
     Route: 048
     Dates: start: 20101117, end: 20101207

REACTIONS (2)
  - NAUSEA [None]
  - BLOOD BILIRUBIN INCREASED [None]
